FAERS Safety Report 7518262-0 (Version None)
Quarter: 2011Q2

REPORT INFORMATION
  Report Type: 
  Country: None (occurrence: None)
  Receive Date: 20110602
  Receipt Date: 20110516
  Transmission Date: 20111010
  Serious: Yes (Hospitalization, Other)
  Sender: FDA-Public Use
  Company Number: CA-AMGEN-CANSP2011010882

PATIENT
  Age: 78 Year
  Sex: Female

DRUGS (16)
  1. ALLOPURINOL [Concomitant]
     Dosage: 200 MG, UNK
     Route: 048
  2. METOPROLOL TARTRATE [Concomitant]
     Dosage: 75 MG, BID
     Route: 048
  3. DOCUSATE SODIUM [Concomitant]
     Dosage: 100 MG, UNK
     Route: 048
  4. DIGOXIN [Concomitant]
     Dosage: 0.062 MG, UNK
     Route: 048
  5. LANSOPRAZOLE [Concomitant]
     Dosage: 30 MG, UNK
     Route: 048
  6. FUROSEMIDE [Concomitant]
     Dosage: 120 MG, QD
  7. COUMADIN [Concomitant]
     Dosage: 4 MG, UNK
     Route: 048
  8. FUROSEMIDE [Concomitant]
     Dosage: 160 MG, QD
     Route: 048
  9. ONE ALPHA [Concomitant]
     Dosage: 0.75 MG, UNK
     Route: 048
  10. ISOSORBIDE DINITRATE [Concomitant]
     Dosage: 120 MG, UNK
     Route: 048
  11. ARANESP [Suspect]
     Indication: NEPHROGENIC ANAEMIA
     Dosage: 30 A?G, Q2WK
     Route: 058
     Dates: start: 20101007
  12. ATORVASTATIN [Concomitant]
     Dosage: 80 MG, UNK
     Route: 048
  13. SPIRONOLACTONE [Concomitant]
     Dosage: 25 MG, UNK
     Route: 048
  14. FERROUS SULFATE TAB [Concomitant]
     Dosage: 300 MG, UNK
     Route: 048
  15. ASPIRIN [Concomitant]
     Dosage: 80 MG, UNK
     Route: 048
  16. AMLODIPINE [Concomitant]
     Dosage: 10 MG, UNK
     Route: 048

REACTIONS (2)
  - ABDOMINAL PAIN [None]
  - ABDOMINAL MASS [None]
